FAERS Safety Report 23606927 (Version 1)
Quarter: 2024Q1

REPORT INFORMATION
  Report Type: Spontaneous
  Country: US (occurrence: None)
  Receive Date: 20240307
  Receipt Date: 20240307
  Transmission Date: 20240409
  Serious: Yes (Hospitalization)
  Sender: FDA-Public Use
  Company Number: None

PATIENT
  Age: 66 Year
  Sex: Male

DRUGS (1)
  1. RINVOQ [Suspect]
     Active Substance: UPADACITINIB
     Dosage: FREQUENCY : DAILY;?

REACTIONS (4)
  - Drug ineffective [None]
  - Therapy interrupted [None]
  - Infection [None]
  - Pain in extremity [None]

NARRATIVE: CASE EVENT DATE: 20240305
